FAERS Safety Report 23813061 (Version 1)
Quarter: 2024Q2

REPORT INFORMATION
  Report Type: Spontaneous
  Country: PT (occurrence: PT)
  Receive Date: 20240503
  Receipt Date: 20240503
  Transmission Date: 20240715
  Serious: Yes (Hospitalization)
  Sender: FDA-Public Use
  Company Number: PT-INFARMED-F202404-525

PATIENT
  Age: 55 Year
  Sex: Female
  Weight: 67 kg

DRUGS (2)
  1. VANCOMYCIN [Suspect]
     Active Substance: VANCOMYCIN
     Indication: Peritonitis
     Dosage: 1800 MILLIGRAM, ONCE A DAY(1800 MG INTRAPERITONEAL (SAME FORMULATION AS INJECTABLE)
     Route: 033
     Dates: start: 20230127, end: 20230127
  2. MEROPENEM [Concomitant]
     Active Substance: MEROPENEM
     Indication: Peritonitis
     Dosage: UNK
     Route: 033

REACTIONS (2)
  - Feeling hot [Recovered/Resolved]
  - Rash pruritic [Recovered/Resolved]

NARRATIVE: CASE EVENT DATE: 20230127
